FAERS Safety Report 8104372-6 (Version None)
Quarter: 2012Q1

REPORT INFORMATION
  Report Type: 
  Country: None (occurrence: None)
  Receive Date: 20120130
  Receipt Date: 20120120
  Transmission Date: 20120608
  Serious: Yes (Death)
  Sender: FDA-Public Use
  Company Number: 1000026851

PATIENT
  Age: 49 Year
  Sex: Male

DRUGS (6)
  1. DILTIAZEM HYDROCHLORIDE [Suspect]
  2. COLCHICINE [Suspect]
  3. INDAPAMIDE [Suspect]
  4. ENALAPRIL MALEATE [Suspect]
  5. DICLOFENAC SODIUM [Suspect]
  6. KETOPROFEN [Suspect]

REACTIONS (26)
  - CARDIOGENIC SHOCK [None]
  - ALANINE AMINOTRANSFERASE INCREASED [None]
  - WHITE BLOOD CELL COUNT INCREASED [None]
  - BLOOD CREATININE INCREASED [None]
  - BLOOD CALCIUM INCREASED [None]
  - MULTIPLE DRUG OVERDOSE [None]
  - MULTI-ORGAN FAILURE [None]
  - BLOOD UREA INCREASED [None]
  - BLOOD ALKALINE PHOSPHATASE INCREASED [None]
  - SUICIDE ATTEMPT [None]
  - RESPIRATORY DISTRESS [None]
  - BLOOD GLUCOSE DECREASED [None]
  - PLATELET COUNT INCREASED [None]
  - POISONING [None]
  - LEUKOCYTOSIS [None]
  - DIARRHOEA [None]
  - GAMMA-GLUTAMYLTRANSFERASE INCREASED [None]
  - VOMITING [None]
  - BLOOD GLUCOSE INCREASED [None]
  - TROPONIN I INCREASED [None]
  - BLOOD POTASSIUM INCREASED [None]
  - BLOOD PH INCREASED [None]
  - BLOOD PH DECREASED [None]
  - DISSEMINATED INTRAVASCULAR COAGULATION [None]
  - CARDIAC ARREST [None]
  - ASPARTATE AMINOTRANSFERASE INCREASED [None]
